FAERS Safety Report 9982019 (Version 1)
Quarter: 2014Q1

REPORT INFORMATION
  Report Type: Spontaneous
  Country: US (occurrence: None)
  Receive Date: 20140127
  Receipt Date: 20140127
  Transmission Date: 20141002
  Serious: Yes (Hospitalization)
  Sender: FDA-Public Use
  Company Number: 1227372

PATIENT
  Age: 81 Year
  Sex: Female
  Weight: 49.5 kg

DRUGS (2)
  1. RITUXAN (RITUXIMAB) (100 MG) [Suspect]
     Indication: CHRONIC LYMPHOCYTIC LEUKAEMIA
     Dosage: 600 MG, 1 IN 28 D, INTRAVENOUS
     Route: 042
     Dates: start: 20130122
  2. BENDAMUSTINE (BENDAMUSTINE) (BENDAMUSTINE) [Concomitant]

REACTIONS (3)
  - Pyrexia [None]
  - Cough [None]
  - Dyspnoea [None]
